FAERS Safety Report 24583295 (Version 1)
Quarter: 2024Q4

REPORT INFORMATION
  Report Type: Spontaneous
  Country: US (occurrence: US)
  Receive Date: 20241106
  Receipt Date: 20241106
  Transmission Date: 20250114
  Serious: Yes (Hospitalization)
  Sender: SANOFI AVENTIS
  Company Number: US-SA-2024SA283939

PATIENT
  Age: 82 Year
  Sex: Female
  Weight: 72.12 kg

DRUGS (4)
  1. DUPIXENT [Suspect]
     Active Substance: DUPILUMAB
     Indication: Dermatitis atopic
     Dosage: 300 MG, QOW
     Route: 058
     Dates: start: 202205
  2. VITAMIN D [Concomitant]
     Active Substance: VITAMIN D NOS
     Route: 065
  3. PROLIA [Concomitant]
     Active Substance: DENOSUMAB
     Route: 065
  4. COVID-19 vaccine [Concomitant]
     Route: 065

REACTIONS (1)
  - Infection [Unknown]
